FAERS Safety Report 4410062-3 (Version None)
Quarter: 2004Q3

REPORT INFORMATION
  Report Type: 
  Country: None (occurrence: None)
  Receive Date: 20040728
  Receipt Date: 20040719
  Transmission Date: 20050211
  Serious: Yes (Hospitalization)
  Sender: FDA-Public Use
  Company Number: PHRM2004FR02366

PATIENT
  Age: 64 Year
  Sex: Female
  Weight: 85 kg

DRUGS (5)
  1. MELLARIL [Suspect]
     Indication: DEMENTIA ALZHEIMER'S TYPE
     Dosage: 50 MG, TID
     Route: 048
     Dates: end: 20030702
  2. LOXAPINE HCL [Suspect]
     Indication: DEMENTIA ALZHEIMER'S TYPE
     Dosage: 25 MG, TID
     Route: 048
     Dates: end: 20030801
  3. DOLIPRANE [Concomitant]
     Route: 048
     Dates: start: 20030507, end: 20030628
  4. AUGMENTIN '250' [Concomitant]
     Indication: LUNG DISORDER
     Dosage: 1 G, TID
     Route: 065
     Dates: start: 20030601, end: 20040717
  5. PREVISCAN [Concomitant]

REACTIONS (7)
  - ABDOMINAL PAIN [None]
  - ANOREXIA [None]
  - BRONCHITIS [None]
  - CONSTIPATION [None]
  - ENEMA ADMINISTRATION [None]
  - HAEMOPTYSIS [None]
  - LUNG DISORDER [None]
